FAERS Safety Report 7805386-3 (Version None)
Quarter: 2011Q4

REPORT INFORMATION
  Report Type: 
  Country: None (occurrence: None)
  Receive Date: 20111010
  Receipt Date: 20110519
  Transmission Date: 20120403
  Serious: No
  Sender: FDA-Public Use
  Company Number: US-BAYER-2011-043971

PATIENT
  Age: 70 Year
  Sex: Female

DRUGS (5)
  1. METRONIDAZOLE [Suspect]
     Indication: DIVERTICULITIS
     Dosage: UNK
     Dates: end: 20110501
  2. ACETAMINOPHEN AND HYDROCODONE BITARTRATE [Concomitant]
  3. LEVOFLOXACIN [Suspect]
     Indication: DIVERTICULITIS
     Dosage: UNK
     Dates: end: 20110501
  4. FLECTOR [Suspect]
     Indication: PAIN IN EXTREMITY
     Dosage: 1.3 %, ONCE
     Dates: start: 20110502
  5. CIPROFLOXACIN [Suspect]
     Indication: DIVERTICULITIS
     Dosage: UNK
     Dates: end: 20110501

REACTIONS (3)
  - VULVOVAGINAL BURNING SENSATION [None]
  - VULVOVAGINAL PRURITUS [None]
  - VULVOVAGINAL ERYTHEMA [None]
